FAERS Safety Report 8379524-0 (Version None)
Quarter: 2012Q2

REPORT INFORMATION
  Report Type: 
  Country: None (occurrence: None)
  Receive Date: 20120523
  Receipt Date: 20120509
  Transmission Date: 20120825
  Serious: Yes (Life-Threatening, Hospitalization)
  Sender: FDA-Public Use
  Company Number: NL-RANBAXY-2012RR-56405

PATIENT
  Sex: Male

DRUGS (1)
  1. VALACICLOVIR [Suspect]
     Indication: ORAL HERPES
     Dosage: 500 MG, BID
     Route: 065
     Dates: start: 20111101, end: 20111102

REACTIONS (2)
  - PARAPLEGIA [None]
  - CONVULSION [None]
